FAERS Safety Report 9496767 (Version 1)
Quarter: 2013Q3

REPORT INFORMATION
  Report Type: Spontaneous
  Country: CN (occurrence: CN)
  Receive Date: 20130904
  Receipt Date: 20130904
  Transmission Date: 20140515
  Serious: Yes (Other)
  Sender: FDA-Public Use
  Company Number: CN-PFIZER INC-2013253798

PATIENT
  Age: 62 Year
  Sex: Male
  Weight: 44 kg

DRUGS (1)
  1. SOLU-MEDROL [Suspect]
     Indication: OPTIC NEURITIS
     Dosage: 750 MG ONCE DAILY
     Route: 041
     Dates: start: 20120806, end: 20120807

REACTIONS (4)
  - Hallucination [Recovering/Resolving]
  - Speech disorder [Recovering/Resolving]
  - Mental disorder [Recovering/Resolving]
  - Dysphoria [Recovering/Resolving]
